FAERS Safety Report 12581362 (Version 1)
Quarter: 2016Q3

REPORT INFORMATION
  Report Type: Spontaneous
  Country: GB (occurrence: GB)
  Receive Date: 20160721
  Receipt Date: 20160721
  Transmission Date: 20161109
  Serious: Yes (Hospitalization)
  Sender: FDA-Public Use
  Company Number: GB-009507513-1607GBR008239

PATIENT
  Age: 62 Year
  Sex: Male

DRUGS (10)
  1. ACYCLOVIR. [Concomitant]
     Active Substance: ACYCLOVIR
     Indication: PLASMA CELL MYELOMA
     Dosage: 800 MG, (400 MG, 2 IN 1D)
     Route: 048
  2. PENTAMIDINE ISETHIONATE [Concomitant]
     Active Substance: PENTAMIDINE ISETHIONATE
     Indication: PLASMA CELL MYELOMA
     Dosage: 300 MG, UNK
     Route: 045
  3. FARYDAK [Suspect]
     Active Substance: PANOBINOSTAT
     Indication: PLASMA CELL MYELOMA
     Dosage: 20 MG, DAY 1, 3, 5, 8, 10, 12 (20MG)
     Route: 048
     Dates: start: 20160503
  4. DEXAMETHASONE. [Suspect]
     Active Substance: DEXAMETHASONE
     Indication: PLASMA CELL MYELOMA
     Dosage: 20 MG, DAY 1, 4, 5, 8, 9, 11, 12 (20MG)
     Route: 048
     Dates: start: 20160503
  5. ALLOPURINOL. [Concomitant]
     Active Substance: ALLOPURINOL
     Indication: GOUT
     Dosage: 300 MG (300 MG, 1 IN 1D)
     Route: 048
  6. DARBEPOETIN ALFA [Concomitant]
     Active Substance: DARBEPOETIN ALFA
     Indication: PLASMA CELL MYELOMA
     Dosage: 500 MG, ALTERNATE WEEKS
     Route: 058
  7. SALBUTAMOL [Concomitant]
     Active Substance: ALBUTEROL
     Indication: PLASMA CELL MYELOMA
     Dosage: 2.5 MG, 4 IN 1 WK
     Route: 045
  8. ZOLEDRONIC ACID [Concomitant]
     Active Substance: ZOLEDRONIC ACID
     Indication: PLASMA CELL MYELOMA
     Dosage: 4 MG, 4 IN 1 WK
     Route: 042
  9. BORTEZOMIB [Suspect]
     Active Substance: BORTEZOMIB
     Indication: PLASMA CELL MYELOMA
     Dosage: 2.9 MG, DAY 1, 4, 8, 11 (2.9MG)
     Route: 058
     Dates: start: 20160503
  10. DARBEPOETIN ALFA [Concomitant]
     Active Substance: DARBEPOETIN ALFA
     Indication: ANAEMIA

REACTIONS (4)
  - Haemoglobin decreased [Unknown]
  - Platelet count decreased [Unknown]
  - Pyrexia [Recovered/Resolved]
  - White blood cell count decreased [Unknown]

NARRATIVE: CASE EVENT DATE: 20160509
